FAERS Safety Report 25060587 (Version 4)
Quarter: 2025Q1

REPORT INFORMATION
  Report Type: Report from Study
  Country: CH (occurrence: CH)
  Receive Date: 20250310
  Receipt Date: 20250328
  Transmission Date: 20250409
  Serious: Yes (Hospitalization)
  Sender: ALNYLAM PHARMACEUTICALS
  Company Number: CH-ALNYLAM PHARMACEUTICALS, INC.-ALN-2025-001477

PATIENT

DRUGS (2)
  1. GIVLAARI [Suspect]
     Active Substance: GIVOSIRAN SODIUM
     Indication: Porphyria acute
     Dosage: 2.5 MILLIGRAM/KILOGRAM, MONTHLY
     Route: 065
     Dates: start: 20240220, end: 20240220
  2. GIVLAARI [Suspect]
     Active Substance: GIVOSIRAN SODIUM
     Dosage: 2.5 MILLIGRAM/KILOGRAM, MONTHLY
     Route: 065
     Dates: start: 20241023, end: 20241023

REACTIONS (1)
  - Colonoscopy [Not Recovered/Not Resolved]

NARRATIVE: CASE EVENT DATE: 20250303
